FAERS Safety Report 10733389 (Version 1)
Quarter: 2015Q1

REPORT INFORMATION
  Report Type: Spontaneous
  Country: US (occurrence: None)
  Receive Date: 20150120
  Receipt Date: 20150120
  Transmission Date: 20150721
  Serious: Yes (Other)
  Sender: FDA-Public Use
  Company Number: 2015PRN00003

PATIENT
  Age: 52 Year
  Sex: Male

DRUGS (8)
  1. LEVETIRACETAM (LEVETIRACETAM) INJECTION [Suspect]
     Active Substance: LEVETIRACETAM
     Route: 042
  2. PROPOFOL. [Concomitant]
     Active Substance: PROPOFOL
  3. ASPIRIN. [Concomitant]
     Active Substance: ASPIRIN
  4. ENOXAPARIN [Concomitant]
     Active Substance: ENOXAPARIN
  5. QUETIAPINE [Concomitant]
     Active Substance: QUETIAPINE
  6. CEFAZOLIN [Concomitant]
     Active Substance: CEFAZOLIN
  7. FENTANYL. [Concomitant]
     Active Substance: FENTANYL
  8. PANTOPRZOLE [Concomitant]

REACTIONS (2)
  - Bone marrow failure [None]
  - Febrile neutropenia [None]
